FAERS Safety Report 15627295 (Version 1)
Quarter: 2018Q4

REPORT INFORMATION
  Report Type: Spontaneous
  Country: CN (occurrence: CN)
  Receive Date: 20181116
  Receipt Date: 20181116
  Transmission Date: 20190205
  Serious: Yes (Other)
  Sender: FDA-Public Use
  Company Number: CN-TAKEDA-2018MPI015993

PATIENT
  Age: 43 Year
  Sex: Male
  Weight: 70 kg

DRUGS (10)
  1. CYCLOPHOSPHAMIDE. [Suspect]
     Active Substance: CYCLOPHOSPHAMIDE
     Dosage: 764 MG, UNK
     Route: 041
     Dates: start: 20170910
  2. CYCLOPHOSPHAMIDE. [Suspect]
     Active Substance: CYCLOPHOSPHAMIDE
     Indication: PLASMACYTOMA
     Dosage: 700 MG, QD
     Route: 041
     Dates: start: 20170906
  3. ETOPOSIDE. [Suspect]
     Active Substance: ETOPOSIDE
     Indication: PLASMACYTOMA
     Dosage: 70 MG, QD
     Route: 041
     Dates: start: 20170906
  4. EPIRUBICIN [Suspect]
     Active Substance: EPIRUBICIN
     Dosage: 33 MG, UNK
     Route: 065
     Dates: start: 20170909
  5. EPIRUBICIN [Suspect]
     Active Substance: EPIRUBICIN
     Indication: PLASMACYTOMA
     Dosage: 20 MG, UNK
     Route: 065
     Dates: start: 20170906
  6. ETOPOSIDE. [Suspect]
     Active Substance: ETOPOSIDE
     Dosage: 76 MG, UNK
     Route: 041
     Dates: start: 20170909
  7. VELCADE [Suspect]
     Active Substance: BORTEZOMIB
     Indication: PLASMACYTOMA
     Dosage: 2.327 MG, Q72H
     Route: 041
     Dates: start: 20170906, end: 20170917
  8. THALIDOMIDE [Suspect]
     Active Substance: THALIDOMIDE
     Indication: PLASMACYTOMA
     Dosage: 100 MG, UNK
     Route: 065
     Dates: start: 20170906
  9. CISPLATIN. [Suspect]
     Active Substance: CISPLATIN
     Indication: PLASMACYTOMA
     Dosage: 17.9 MG, Q72H
     Route: 041
     Dates: start: 20170906, end: 20170909
  10. DEXAMETHASONE. [Suspect]
     Active Substance: DEXAMETHASONE
     Indication: PLASMACYTOMA
     Dosage: 40 MG, UNK
     Route: 065
     Dates: start: 20170906

REACTIONS (1)
  - Bone marrow failure [Recovering/Resolving]

NARRATIVE: CASE EVENT DATE: 20171026
